FAERS Safety Report 8984284 (Version 1)
Quarter: 2012Q4

REPORT INFORMATION
  Report Type: 
  Country: JP (occurrence: JP)
  Receive Date: 20121226
  Receipt Date: 20121226
  Transmission Date: 20130627
  Serious: Yes (Hospitalization)
  Sender: FDA-Public Use
  Company Number: JP-SANOFI-AVENTIS-2012SA093298

PATIENT
  Sex: Male
  Weight: 69.6 kg

DRUGS (6)
  1. OXALIPLATIN [Suspect]
     Indication: COLORECTAL CANCER RECURRENT
     Route: 041
     Dates: start: 20121102
  2. ERBITUX [Suspect]
     Indication: COLORECTAL CANCER RECURRENT
     Dosage: strength: 5 mg/ml
     Route: 041
     Dates: start: 20121102, end: 20121109
  3. 5-FU [Suspect]
     Indication: COLORECTAL CANCER RECURRENT
     Route: 041
     Dates: start: 20121102, end: 20121102
  4. 5-FU [Suspect]
     Indication: COLORECTAL CANCER RECURRENT
     Route: 040
     Dates: start: 20121102, end: 20121102
  5. CALCIUM LEVOFOLINATE [Suspect]
     Indication: COLORECTAL CANCER RECURRENT
     Route: 041
     Dates: start: 20121102, end: 20121102
  6. MAGLAX [Concomitant]
     Indication: CONSTIPATION
     Route: 048
     Dates: start: 201106

REACTIONS (1)
  - Diverticulum intestinal haemorrhagic [Not Recovered/Not Resolved]
